FAERS Safety Report 7313799-1 (Version None)
Quarter: 2011Q1

REPORT INFORMATION
  Report Type: 
  Country: None (occurrence: None)
  Receive Date: 20110225
  Receipt Date: 20110221
  Transmission Date: 20110831
  Serious: Yes (Death, Hospitalization)
  Sender: FDA-Public Use
  Company Number: FR-PFIZER INC-2011025497

PATIENT
  Age: 73 Year
  Sex: Female

DRUGS (3)
  1. SUTENT [Suspect]
     Indication: RENAL CANCER METASTATIC
     Dosage: 50 MG, 1X/DAY
     Dates: start: 20100901
  2. SUTENT [Suspect]
     Dosage: 37.5 MG, UNK
  3. SUTENT [Suspect]
     Dosage: 25 MG, UNK
     Dates: end: 20110101

REACTIONS (8)
  - RESPIRATORY DISTRESS [None]
  - RENAL FAILURE ACUTE [None]
  - RENAL CANCER METASTATIC [None]
  - PLEURAL EFFUSION [None]
  - GENERALISED OEDEMA [None]
  - NEPHROTIC SYNDROME [None]
  - DISEASE PROGRESSION [None]
  - CARDIAC FAILURE [None]
